FAERS Safety Report 6875198-6 (Version None)
Quarter: 2010Q3

REPORT INFORMATION
  Report Type: 
  Country: None (occurrence: None)
  Receive Date: 20100727
  Receipt Date: 20070702
  Transmission Date: 20110219
  Serious: Yes (Hospitalization)
  Sender: FDA-Public Use
  Company Number: US-PFIZER INC-2006151310

PATIENT
  Sex: Male
  Weight: 72.6 kg

DRUGS (7)
  1. CELEBREX [Suspect]
     Indication: PAIN
     Dates: start: 20021002, end: 20040601
  2. VIOXX [Suspect]
     Indication: PAIN
     Dates: start: 20020305, end: 20040301
  3. PROTONIX [Concomitant]
     Indication: DYSPEPSIA
  4. TOPROL-XL [Concomitant]
     Indication: CARDIAC DISORDER
     Dates: start: 20040301
  5. ATENOLOL [Concomitant]
     Indication: HYPERTENSION
  6. INSULIN [Concomitant]
     Indication: DIABETES MELLITUS
  7. LIPITOR [Concomitant]
     Indication: BLOOD CHOLESTEROL INCREASED
     Dates: start: 20020101

REACTIONS (2)
  - MYOCARDIAL INFARCTION [None]
  - TRANSIENT ISCHAEMIC ATTACK [None]
